FAERS Safety Report 19887062 (Version 1)
Quarter: 2021Q3

REPORT INFORMATION
  Report Type: Spontaneous
  Country: US (occurrence: US)
  Receive Date: 20210928
  Receipt Date: 20210928
  Transmission Date: 20211014
  Serious: Yes (Hospitalization)
  Sender: FDA-Public Use
  Company Number: US-STRIDES ARCOLAB LIMITED-2021SP025483

PATIENT
  Age: 58 Year
  Sex: Male

DRUGS (6)
  1. GABAPENTIN. [Suspect]
     Active Substance: GABAPENTIN
     Indication: CENTRAL PAIN SYNDROME
     Dosage: 2400 MILLIGRAM (600MG IN THE MORNING AND AFTERNOON, AND 1200MG AT NIGHT)
     Route: 065
  2. LIDOCAINE. [Suspect]
     Active Substance: LIDOCAINE
     Indication: CENTRAL PAIN SYNDROME
     Dosage: TOPICAL CREAM, 3 TIMES A DAY
     Route: 061
  3. TRAMADOL. [Suspect]
     Active Substance: TRAMADOL
     Indication: CENTRAL PAIN SYNDROME
     Dosage: 50 MILLIGRAM EVERY 8 HRS AS NEEDED
     Route: 065
  4. TIZANIDINE. [Suspect]
     Active Substance: TIZANIDINE
     Indication: CENTRAL PAIN SYNDROME
     Dosage: 4 MILLIGRAM PER 1 DAY
     Route: 065
  5. VENLAFAXINE [Suspect]
     Active Substance: VENLAFAXINE HYDROCHLORIDE
     Indication: CENTRAL PAIN SYNDROME
     Dosage: 37.5 MILLIGRAM TWICE DAILY
     Route: 065
  6. HYDROCODONE/ACETAMINOPHEN [Suspect]
     Active Substance: ACETAMINOPHEN\HYDROCODONE
     Indication: CENTRAL PAIN SYNDROME
     Dosage: 1DOSGAE FORM FOR EVERY 4 HOURS AS NEEDED
     Route: 065

REACTIONS (2)
  - Drug ineffective [Unknown]
  - Off label use [Unknown]
